FAERS Safety Report 5789389-9 (Version None)
Quarter: 2008Q2

REPORT INFORMATION
  Report Type: 
  Country: None (occurrence: None)
  Receive Date: 20080626
  Receipt Date: 20080212
  Transmission Date: 20081010
  Serious: No
  Sender: FDA-Public Use
  Company Number: US-ASTRAZENECA-2008UW02217

PATIENT
  Age: 9 Month
  Sex: Male

DRUGS (1)
  1. PULMICORT RESPULES [Suspect]
     Indication: WHEEZING
     Route: 055
     Dates: start: 20080129

REACTIONS (4)
  - EAR INFECTION [None]
  - HEART RATE INCREASED [None]
  - NASOPHARYNGITIS [None]
  - RESPIRATORY RATE INCREASED [None]
